FAERS Safety Report 5115354-0 (Version None)
Quarter: 2006Q3

REPORT INFORMATION
  Report Type: 
  Country: None (occurrence: None)
  Receive Date: 20060922
  Receipt Date: 20060912
  Transmission Date: 20061208
  Serious: Yes (Other)
  Sender: FDA-Public Use
  Company Number: 2006107150

PATIENT
  Sex: Female

DRUGS (3)
  1. ZOLOFT [Suspect]
  2. PROZAC [Suspect]
  3. PAROXETINE [Suspect]

REACTIONS (3)
  - ABORTION SPONTANEOUS [None]
  - ANXIETY [None]
  - DRUG EXPOSURE DURING PREGNANCY [None]
